FAERS Safety Report 6946302-6 (Version None)
Quarter: 2010Q3

REPORT INFORMATION
  Report Type: 
  Country: None (occurrence: None)
  Receive Date: 20100827
  Receipt Date: 20100824
  Transmission Date: 20110219
  Serious: Yes (Other)
  Sender: FDA-Public Use
  Company Number: US-ALLERGAN-1010963US

PATIENT
  Age: 56 Year
  Sex: Female

DRUGS (2)
  1. BOTOX [Suspect]
     Indication: MUSCLE SPASTICITY
     Dosage: 100 UNITS, SINGLE
     Route: 030
     Dates: start: 20100701, end: 20100701
  2. BOTOX [Suspect]
     Indication: MUSCLE SPASMS

REACTIONS (3)
  - DYSPHAGIA [None]
  - LARYNGITIS [None]
  - MUSCULAR WEAKNESS [None]
